FAERS Safety Report 4459433-X (Version None)
Quarter: 2004Q3

REPORT INFORMATION
  Report Type: 
  Country: None (occurrence: None)
  Receive Date: 20040927
  Receipt Date: 20040909
  Transmission Date: 20050211
  Serious: Yes (Other)
  Sender: FDA-Public Use
  Company Number: FR-GLAXOSMITHKLINE-B0344836A

PATIENT
  Age: 50 Year
  Sex: Male

DRUGS (2)
  1. IMIGRANE [Suspect]
     Indication: MIGRAINE
     Dosage: 1UNIT PER DAY
     Route: 045
     Dates: start: 20040825, end: 20040825
  2. PARACETAMOL [Concomitant]
     Indication: MIGRAINE
     Dosage: 500MG PER DAY
     Route: 048
     Dates: start: 20040825, end: 20040825

REACTIONS (4)
  - ASTHENIA [None]
  - HEPATITIS ACUTE [None]
  - OCULAR ICTERUS [None]
  - TRANSAMINASES INCREASED [None]
